FAERS Safety Report 7754746-8 (Version None)
Quarter: 2011Q3

REPORT INFORMATION
  Report Type: 
  Country: None (occurrence: None)
  Receive Date: 20110916
  Receipt Date: 20110902
  Transmission Date: 20111222
  Serious: Yes (Other)
  Sender: FDA-Public Use
  Company Number: GB-MYLANLABS-2011S1012418

PATIENT
  Age: 15 Month
  Sex: Male
  Weight: 10.4 kg

DRUGS (14)
  1. SPIRONOLACTONE [Concomitant]
     Indication: DIABETES MELLITUS
     Dates: start: 20110305, end: 20110528
  2. MILRINONE [Concomitant]
     Indication: POSTOPERATIVE CARE
     Dates: start: 20110415
  3. FUROSEMIDE [Suspect]
     Indication: CARDIAC DISORDER
     Route: 048
     Dates: start: 20100305, end: 20110528
  4. CEFUROXIME [Concomitant]
     Indication: POSTOPERATIVE CARE
     Dates: start: 20110415
  5. LACTULOSE [Concomitant]
     Indication: CONSTIPATION
     Dates: start: 20110418, end: 20110421
  6. HEPARIN [Concomitant]
     Indication: POSTOPERATIVE CARE
     Dates: start: 20110415
  7. VANCOMYCIN [Interacting]
     Indication: ENDOCARDITIS
     Route: 042
     Dates: start: 20110502, end: 20110526
  8. NYSTATIN [Concomitant]
     Indication: CANDIDIASIS
     Route: 048
     Dates: start: 20110524, end: 20110531
  9. RIFAMPICIN [Interacting]
     Indication: ENDOCARDITIS
     Route: 048
     Dates: start: 20110502, end: 20110526
  10. CEFOTAXIME [Interacting]
     Indication: ENDOCARDITIS
     Route: 042
     Dates: start: 20110502, end: 20110526
  11. ASPIRIN [Concomitant]
     Indication: ANTIPLATELET THERAPY
     Route: 048
     Dates: start: 20110415
  12. ACETAMINOPHEN [Concomitant]
     Indication: PYREXIA
  13. CODEINE SULFATE [Concomitant]
     Indication: PAIN
  14. GENTAMICIN [Concomitant]
     Indication: ENDOCARDITIS
     Dates: start: 20110502

REACTIONS (2)
  - RASH ERYTHEMATOUS [None]
  - DRUG INTERACTION [None]
